FAERS Safety Report 8076782-7 (Version None)
Quarter: 2012Q1

REPORT INFORMATION
  Report Type: 
  Country: None (occurrence: None)
  Receive Date: 20120127
  Receipt Date: 20120117
  Transmission Date: 20120608
  Serious: Yes (Other)
  Sender: FDA-Public Use
  Company Number: US-JNJFOC-20120106945

PATIENT
  Sex: Female
  Weight: 56.25 kg

DRUGS (5)
  1. SIMVASTATIN [Concomitant]
     Indication: BLOOD CHOLESTEROL
     Route: 048
  2. BUNITROLOL [Concomitant]
     Indication: BLOOD PRESSURE
     Route: 048
  3. LOSARTAN POTASSIUM [Suspect]
     Indication: HYPERTENSION
     Route: 048
     Dates: start: 20120101
  4. XARELTO [Suspect]
     Indication: ATRIAL FIBRILLATION
     Route: 048
     Dates: start: 20120101
  5. XARELTO [Suspect]
     Route: 048
     Dates: start: 20111201, end: 20111201

REACTIONS (4)
  - ASTHENIA [None]
  - DYSPHAGIA [None]
  - EATING DISORDER [None]
  - SWOLLEN TONGUE [None]
